FAERS Safety Report 9796843 (Version 2)
Quarter: 2014Q1

REPORT INFORMATION
  Report Type: Spontaneous
  Country: US (occurrence: US)
  Receive Date: 20140103
  Receipt Date: 20140120
  Transmission Date: 20141002
  Serious: No
  Sender: FDA-Public Use
  Company Number: US-GILEAD-2014-0091135

PATIENT
  Age: 65 Year
  Sex: Female

DRUGS (23)
  1. LETAIRIS [Suspect]
     Indication: PULMONARY ARTERIAL HYPERTENSION
     Dosage: 5 MG, QD
     Route: 048
     Dates: start: 20130410
  2. LETAIRIS [Suspect]
     Indication: CHRONIC OBSTRUCTIVE PULMONARY DISEASE
  3. LETAIRIS [Suspect]
     Indication: CHRONIC RESPIRATORY FAILURE
  4. LETAIRIS [Suspect]
     Indication: CARDIAC FAILURE CONGESTIVE
  5. ALBUTEROL                          /00139501/ [Concomitant]
  6. HUMALOG [Concomitant]
  7. LANTUS [Concomitant]
  8. RANEXA [Concomitant]
  9. LASIX                              /00032601/ [Concomitant]
  10. CYMBALTA [Concomitant]
  11. OMEPRAZOLE [Concomitant]
  12. WARFARIN [Concomitant]
  13. LIPITOR [Concomitant]
  14. FISH OIL [Concomitant]
  15. MULTIVITAMIN                       /07504101/ [Concomitant]
  16. VITAMIN B COMPLEX [Concomitant]
  17. VITAMIN C                          /00008001/ [Concomitant]
  18. ESTROVEN [Concomitant]
  19. ASPIRIN [Concomitant]
  20. CALCIUM [Concomitant]
  21. HYDROCODONE/ACETAMINOPHEN          /01554201/ [Concomitant]
  22. SYMBICORT [Concomitant]
  23. VENTOLIN                           /00139502/ [Concomitant]

REACTIONS (1)
  - Dyspnoea [Not Recovered/Not Resolved]
